FAERS Safety Report 14861649 (Version 1)
Quarter: 2018Q2

REPORT INFORMATION
  Report Type: Spontaneous
  Country: FR (occurrence: FR)
  Receive Date: 20180508
  Receipt Date: 20180508
  Transmission Date: 20180711
  Serious: Yes (Hospitalization)
  Sender: FDA-Public Use
  Company Number: FR-TEVA-2018-FR-890924

PATIENT
  Age: 63 Year
  Sex: Female

DRUGS (8)
  1. LEVOTHYROX 75 MICROGRAMMES, COMPRIM? S?CABLE [Concomitant]
     Dosage: 1 DOSAGE FORMS DAILY;
     Route: 048
  2. UN-ALFA 0,10 MICROGRAMMES, SOLUTION BUVABLE EN GOUTTES [Concomitant]
     Route: 048
  3. ELISOR [Concomitant]
     Active Substance: PRAVASTATIN SODIUM
     Route: 048
  4. MOPRAL 20 MG, COMPRIM? GASTRO-R?SISTANT [Concomitant]
     Dosage: 1 DOSAGE FORMS DAILY;
     Route: 048
  5. TENORMINE 50 MG, COMPRIM? PELLICUL? S?CABLE [Concomitant]
     Dosage: 1 DOSAGE FORMS DAILY;
     Route: 048
  6. AERIUS [Concomitant]
     Active Substance: DESLORATADINE
     Route: 048
  7. CISPLATIN. [Suspect]
     Active Substance: CISPLATIN
     Indication: LARYNGEAL CANCER
     Route: 042
  8. KARDEGIC [Concomitant]
     Active Substance: ASPIRIN DL-LYSINE
     Dosage: 1 DOSAGE FORMS DAILY;
     Route: 048

REACTIONS (2)
  - Acute kidney injury [Recovering/Resolving]
  - Hyperkalaemia [Recovering/Resolving]
